FAERS Safety Report 6073733-1 (Version None)
Quarter: 2009Q1

REPORT INFORMATION
  Report Type: 
  Country: None (occurrence: None)
  Receive Date: 20090211
  Receipt Date: 20090130
  Transmission Date: 20090719
  Serious: Yes (Hospitalization, Other)
  Sender: FDA-Public Use
  Company Number: US-JNJFOC-20090200412

PATIENT
  Sex: Female
  Weight: 83.6 kg

DRUGS (14)
  1. CISAPRIDE [Suspect]
     Indication: IMPAIRED GASTRIC EMPTYING
     Route: 048
  2. CISAPRIDE [Suspect]
     Indication: GASTROOESOPHAGEAL REFLUX DISEASE
     Route: 048
  3. VYTORIN [Concomitant]
     Indication: HYPERCHOLESTEROLAEMIA
     Route: 048
  4. AMBIEN [Concomitant]
     Indication: ANXIETY
     Dosage: AS NEEDED
     Route: 048
  5. K-DUR [Concomitant]
     Indication: ELECTROLYTE SUBSTITUTION THERAPY
     Route: 048
  6. AMITIZA [Concomitant]
     Indication: CONSTIPATION
     Route: 048
  7. NEXIUM [Concomitant]
     Indication: GASTROOESOPHAGEAL REFLUX DISEASE
     Route: 048
  8. SYNTHROID [Concomitant]
     Indication: HYPOTHYROIDISM
     Route: 048
  9. REGLAN [Concomitant]
     Indication: GASTROOESOPHAGEAL REFLUX DISEASE
     Route: 048
  10. VASOTEC [Concomitant]
     Indication: HYPERTENSION
     Route: 048
  11. KLONOPIN [Concomitant]
     Indication: TREMOR
     Route: 048
  12. LAMICTAL [Concomitant]
     Indication: BIPOLAR DISORDER
     Route: 048
  13. ALLEGRA D 24 HOUR [Concomitant]
     Indication: MULTIPLE ALLERGIES
     Route: 048
  14. GRIFULVIN [Concomitant]
     Indication: FUNGAL INFECTION
     Route: 048

REACTIONS (10)
  - ABDOMINAL PAIN [None]
  - ABDOMINAL PAIN UPPER [None]
  - ANXIETY [None]
  - ASTHENIA [None]
  - BACK PAIN [None]
  - CHEST PAIN [None]
  - DYSPNOEA [None]
  - HYPOTENSION [None]
  - OVERDOSE [None]
  - SUICIDE ATTEMPT [None]
